FAERS Safety Report 5499910-6 (Version None)
Quarter: 2007Q4

REPORT INFORMATION
  Report Type: 
  Country: None (occurrence: None)
  Receive Date: 20071026
  Receipt Date: 20071015
  Transmission Date: 20080405
  Serious: Yes (Other)
  Sender: FDA-Public Use
  Company Number: US-PFIZER INC-2007087023

PATIENT
  Sex: Male
  Weight: 77.6 kg

DRUGS (19)
  1. DILANTIN [Suspect]
     Dates: start: 19830101, end: 19830101
  2. CHANTIX [Suspect]
     Indication: SMOKING CESSATION THERAPY
  3. NEURONTIN [Suspect]
  4. CYMBALTA [Suspect]
  5. REMERON [Concomitant]
  6. GEODON [Concomitant]
  7. XANAX [Concomitant]
  8. AXID [Concomitant]
  9. ENALAPRIL MALEATE [Concomitant]
  10. ATENOLOL [Concomitant]
  11. METFORMIN [Concomitant]
  12. GLUCOTROL [Concomitant]
  13. REQUIP [Concomitant]
  14. BIAXIN [Concomitant]
  15. CELEXA [Concomitant]
  16. METFORMIN [Concomitant]
  17. GLUCOTROL [Concomitant]
  18. MACRODANTIN [Concomitant]
  19. GABITRIL [Concomitant]

REACTIONS (7)
  - BLADDER DISORDER [None]
  - CONVULSION [None]
  - ERECTILE DYSFUNCTION [None]
  - FLATULENCE [None]
  - INCORRECT DOSE ADMINISTERED [None]
  - RENAL INJURY [None]
  - URTICARIA [None]
